FAERS Safety Report 9146706 (Version 1)
Quarter: 2013Q1

REPORT INFORMATION
  Report Type: Spontaneous
  Country: US (occurrence: None)
  Receive Date: 20130211
  Receipt Date: 20130211
  Transmission Date: 20140127
  Serious: Yes (Death, Hospitalization)
  Sender: FDA-Public Use
  Company Number: TPA2013A01209

PATIENT
  Age: 74 Year
  Sex: Female
  Weight: 69.4 kg

DRUGS (4)
  1. ULORIC (FEBUXOSTAT) [Suspect]
     Indication: GOUT
     Route: 048
     Dates: start: 201201, end: 20130125
  2. CLONIDINE [Concomitant]
  3. LOVASTATIN [Concomitant]
  4. MEDICATIONS (ALL OTHER THERAPEUTIC PRODUCTS) [Concomitant]

REACTIONS (4)
  - Incision site haemorrhage [None]
  - Shock [None]
  - Hypotension [None]
  - Myocardial infarction [None]
